FAERS Safety Report 20810274 (Version 1)
Quarter: 2022Q2

REPORT INFORMATION
  Report Type: Spontaneous
  Country: US (occurrence: None)
  Receive Date: 20220510
  Receipt Date: 20220510
  Transmission Date: 20220721
  Serious: No
  Sender: FDA-Public Use
  Company Number: None

PATIENT
  Age: 50 Year
  Sex: Male
  Weight: 66.41 kg

DRUGS (1)
  1. AKYNZEO (FOSNETUPITANT\PALONOSETRON HYDROCHLORIDE) [Suspect]
     Active Substance: FOSNETUPITANT\PALONOSETRON HYDROCHLORIDE
     Indication: Lung neoplasm malignant
     Dosage: OTHER QUANTITY : 235-0.25;?FREQUENCY : AS DIRECTED;?
     Route: 042
     Dates: start: 202112, end: 20220510

REACTIONS (1)
  - Disease progression [None]
